FAERS Safety Report 15783683 (Version 1)
Quarter: 2019Q1

REPORT INFORMATION
  Report Type: Report from Study
  Country: DE (occurrence: DE)
  Receive Date: 20190102
  Receipt Date: 20190102
  Transmission Date: 20190417
  Serious: Yes (Hospitalization, Other)
  Sender: FDA-Public Use
  Company Number: DE-PFIZER INC-2018534961

PATIENT
  Age: 77 Year
  Sex: Female
  Weight: 58 kg

DRUGS (15)
  1. CARBOPLATIN. [Suspect]
     Active Substance: CARBOPLATIN
     Indication: OVARIAN CANCER
     Dosage: 382 MG, UNK
     Dates: start: 20130219, end: 20130219
  2. GEMCITABINE [Concomitant]
     Active Substance: GEMCITABINE\GEMCITABINE HYDROCHLORIDE
     Dosage: 1580 MG, UNK
     Dates: start: 20130318, end: 20130318
  3. BEVACIZUMAB. [Suspect]
     Active Substance: BEVACIZUMAB
     Indication: OVARIAN CANCER
     Dosage: 1117 MG, UNK
     Route: 042
     Dates: start: 20130107
  4. AMLODIPINE [Concomitant]
     Active Substance: AMLODIPINE BESYLATE
     Indication: HYPERTENSIVE CRISIS
     Dosage: 10 MG, 1X/DAY
     Route: 048
     Dates: start: 20130726, end: 20130801
  5. GEMCITABINE [Concomitant]
     Active Substance: GEMCITABINE\GEMCITABINE HYDROCHLORIDE
     Indication: OVARIAN CANCER
     Dosage: 1560 MG, UNK
     Dates: start: 20130219, end: 20130219
  6. BEVACIZUMAB. [Suspect]
     Active Substance: BEVACIZUMAB
     Dosage: UNK
     Route: 042
     Dates: start: 20130219, end: 20130219
  7. RAMIPRIL. [Concomitant]
     Active Substance: RAMIPRIL
     Indication: HYPERTENSIVE CRISIS
     Dosage: 5 MG, UNK
     Route: 048
     Dates: start: 20130726
  8. GEMCITABINE [Concomitant]
     Active Substance: GEMCITABINE\GEMCITABINE HYDROCHLORIDE
     Dosage: 1580 MG, UNK
     Dates: start: 20130408, end: 20130408
  9. GEMCITABINE [Concomitant]
     Active Substance: GEMCITABINE\GEMCITABINE HYDROCHLORIDE
     Dosage: 1550 MG, UNK
     Dates: start: 20130712, end: 20130712
  10. CARBOPLATIN. [Suspect]
     Active Substance: CARBOPLATIN
     Dosage: 350 MG, UNK
     Dates: start: 20130712, end: 20130712
  11. BEVACIZUMAB. [Suspect]
     Active Substance: BEVACIZUMAB
     Dosage: 780 MG, UNK
     Route: 042
     Dates: start: 20130906
  12. METOPROLOL. [Concomitant]
     Active Substance: METOPROLOL
     Indication: HYPERTENSIVE CRISIS
     Dosage: 95 MG, 1X/DAY
     Route: 048
     Dates: start: 20130726
  13. GEMCITABINE [Concomitant]
     Active Substance: GEMCITABINE\GEMCITABINE HYDROCHLORIDE
     Dosage: 1560 MG, UNK
     Dates: start: 20130503, end: 20130503
  14. GEMCITABINE [Concomitant]
     Active Substance: GEMCITABINE\GEMCITABINE HYDROCHLORIDE
     Dosage: 1560 MG, UNK
     Dates: start: 20130607, end: 20130607
  15. GEMCITABINE [Concomitant]
     Active Substance: GEMCITABINE\GEMCITABINE HYDROCHLORIDE
     Dosage: 1510 MG, UNK
     Dates: start: 20130912, end: 20130912

REACTIONS (4)
  - Hypertensive crisis [Recovered/Resolved]
  - Dehydration [Recovered/Resolved]
  - Depression [Recovered/Resolved]
  - Muscle fatigue [Unknown]

NARRATIVE: CASE EVENT DATE: 20130726
